FAERS Safety Report 6030897 (Version 9)
Quarter: 2019Q4

REPORT INFORMATION
  Report Type: Spontaneous
  Country: AU (occurrence: AU)
  Receive Date: 20060424
  Receipt Date: 20191008
  Transmission Date: 20200122
  Serious: Yes (Death, Hospitalization, Other)
  Sender: FDA-Public Use
  Company Number: AU-AMGEN-US176199

PATIENT
  Age: 77 Year
  Sex: Male
  Weight: 78 kg

DRUGS (7)
  1. ARANESP [Suspect]
     Active Substance: DARBEPOETIN ALFA
     Dosage: 80 MUG, QWK
     Route: 058
     Dates: start: 2006, end: 20060314
  2. ASPIRIN. [Concomitant]
     Active Substance: ASPIRIN
     Dosage: UNK UNK, UNK
     Dates: start: 2004
  3. PANTOPRAZOLE [Concomitant]
     Active Substance: PANTOPRAZOLE
     Dosage: 40 MG, QD
     Dates: start: 200601
  4. ENALAPRIL [Concomitant]
     Active Substance: ENALAPRIL
     Dosage: UNK UNK, UNK
     Dates: start: 2006
  5. PANTOPRAZOLE SODIUM. [Concomitant]
     Active Substance: PANTOPRAZOLE SODIUM
     Dosage: UNK UNK, UNK
     Dates: start: 2006
  6. ARANESP [Suspect]
     Active Substance: DARBEPOETIN ALFA
     Indication: NEPHROGENIC ANAEMIA
     Dosage: 40 MICROGRAM
     Route: 058
     Dates: start: 20050411
  7. ATORVASTATIN CALCIUM. [Concomitant]
     Active Substance: ATORVASTATIN CALCIUM
     Dosage: UNK UNK, UNK
     Dates: start: 2004

REACTIONS (18)
  - Pyrexia [Unknown]
  - Atrial fibrillation [Unknown]
  - Epstein-Barr virus test positive [Unknown]
  - Haemorrhoids [Unknown]
  - Gastrointestinal polyp [Unknown]
  - Anti-erythropoietin antibody positive [Unknown]
  - Dyspnoea [Unknown]
  - Pneumonia [Fatal]
  - Asthenia [Unknown]
  - Lung infiltration [Unknown]
  - Diverticulum [Unknown]
  - C-reactive protein increased [Unknown]
  - Pain in extremity [Unknown]
  - Chronic gastritis [Unknown]
  - Aplasia pure red cell [Recovered/Resolved]
  - Lethargy [Unknown]
  - Ventilation/perfusion scan abnormal [Unknown]
  - Lymphocyte percentage decreased [Unknown]

NARRATIVE: CASE EVENT DATE: 2006
